FAERS Safety Report 8909392 (Version 1)
Quarter: 2012Q4

REPORT INFORMATION
  Report Type: Spontaneous
  Country: GB (occurrence: None)
  Receive Date: 20121109
  Receipt Date: 20121109
  Transmission Date: 20130627
  Serious: Yes (Other)
  Sender: FDA-Public Use
  Company Number: GER/UKI/12/0026545

PATIENT
  Age: 62 Year
  Sex: Male
  Weight: 96 kg

DRUGS (12)
  1. FINASTERIDE (FINASTERIDE) [Suspect]
     Dosage: 5 mg, 1 in 1 D
     Dates: start: 20121003, end: 20121014
  2. TAMSULOSIN HYDROCHLORIDE [Suspect]
     Indication: BLADDER DISORDER
     Dosage: 400 mcg, 1 in 1 D
     Dates: start: 20121003, end: 20121014
  3. ZOMORPH (MORPHINE SULFATE) [Concomitant]
  4. EZETIMIBE (EZETIMIBE) [Concomitant]
  5. LACTULOSE (LACTULOSE) [Concomitant]
  6. SITAGLIPTIN (SITAGLIPTIN) [Concomitant]
  7. METFORMIN HYDROCHLORIDE (METFORMIN HYDROCHLORIDE) [Concomitant]
  8. MONTELUKAST SODIUM (MONTELUKAST SODIUM) [Concomitant]
  9. OMEPRAZOLE (OMEPRAZOLE) [Concomitant]
  10. SENNA (SENNA ALEXANDRINA) [Concomitant]
  11. SYMICORT (BUDESONIDE W/FORMOTEROL FUMARATE) [Concomitant]
  12. TERBINAFINE (TERBUTAFINE) [Concomitant]

REACTIONS (10)
  - Headache [None]
  - Chest pain [None]
  - Abdominal pain [None]
  - Palpitations [None]
  - Testicular pain [None]
  - Diarrhoea [None]
  - Dizziness [None]
  - Pain [None]
  - Malaise [None]
  - Condition aggravated [None]
